FAERS Safety Report 15277953 (Version 1)
Quarter: 2018Q3

REPORT INFORMATION
  Report Type: Spontaneous
  Country: US (occurrence: US)
  Receive Date: 20180814
  Receipt Date: 20180814
  Transmission Date: 20181010
  Serious: No
  Sender: FDA-Public Use
  Company Number: US-MYLANLABS-2018M1058775

PATIENT
  Sex: Male
  Weight: 8 kg

DRUGS (1)
  1. LEVOTHYROXINE. [Suspect]
     Active Substance: LEVOTHYROXINE
     Indication: CONGENITAL HYPOTHYROIDISM
     Dosage: 25 ?G, UNK
     Route: 048

REACTIONS (4)
  - Wrong technique in product usage process [Recovered/Resolved]
  - Weight decreased [Not Recovered/Not Resolved]
  - Hair growth rate abnormal [Not Recovered/Not Resolved]
  - Thyroid function test abnormal [Not Recovered/Not Resolved]
